FAERS Safety Report 5508973-0 (Version None)
Quarter: 2007Q4

REPORT INFORMATION
  Report Type: 
  Country: None (occurrence: None)
  Receive Date: 20071031
  Receipt Date: 20070817
  Transmission Date: 20080405
  Serious: No
  Sender: FDA-Public Use
  Company Number: 2007PV033318

PATIENT
  Age: 37 Year
  Sex: Female
  Weight: 91.6266 kg

DRUGS (8)
  1. SYMLIN [Suspect]
     Indication: TYPE 2 DIABETES MELLITUS
     Dosage: 120, 60 MCG;TID;SC
     Route: 058
     Dates: start: 20070814, end: 20070816
  2. SYMLIN [Suspect]
     Indication: TYPE 2 DIABETES MELLITUS
     Dosage: 120, 60 MCG;TID;SC
     Route: 058
     Dates: start: 20070816
  3. RELAFEN [Suspect]
     Indication: JOINT INJURY
     Dosage: 750 MG;BID;PO
     Route: 048
     Dates: start: 20070816
  4. LANTUS [Concomitant]
  5. NOVOLOG [Concomitant]
  6. PIOGLITAZONE [Concomitant]
  7. OXCARBAZEPINE [Concomitant]
  8. SEROQUEL [Concomitant]

REACTIONS (3)
  - DIARRHOEA [None]
  - FATIGUE [None]
  - FLATULENCE [None]
